FAERS Safety Report 5721088-1 (Version None)
Quarter: 2008Q2

REPORT INFORMATION
  Report Type: 
  Country: None (occurrence: None)
  Receive Date: 20080424
  Receipt Date: 20080414
  Transmission Date: 20081010
  Serious: Yes (Hospitalization)
  Sender: FDA-Public Use
  Company Number: 2008-02423

PATIENT
  Age: 40 Year
  Sex: Female

DRUGS (1)
  1. TRELSTAR [Suspect]
     Indication: ENDOMETRIOSIS
     Dosage: 11.25 MG, INTRAMUSCULAR
     Route: 030
     Dates: start: 20071101

REACTIONS (1)
  - TRANSIENT ISCHAEMIC ATTACK [None]
